FAERS Safety Report 9678814 (Version 3)
Quarter: 2014Q1

REPORT INFORMATION
  Report Type: Spontaneous
  Country: US (occurrence: US)
  Receive Date: 20131108
  Receipt Date: 20140217
  Transmission Date: 20141002
  Serious: Yes (Hospitalization)
  Sender: FDA-Public Use
  Company Number: US-GLAXOSMITHKLINE-A1048761A

PATIENT
  Age: 59 Year
  Sex: Female

DRUGS (2)
  1. LAMICTAL XR [Suspect]
     Indication: EPILEPSY
     Dosage: 100MG UNKNOWN
     Route: 048
     Dates: start: 20131205, end: 20131210
  2. LAMICTAL [Suspect]
     Indication: CONVULSION
     Dosage: 100MG UNKNOWN
     Route: 065
     Dates: start: 20130314

REACTIONS (4)
  - Investigation [Unknown]
  - Adverse reaction [Not Recovered/Not Resolved]
  - Epigastric discomfort [Not Recovered/Not Resolved]
  - Nausea [Not Recovered/Not Resolved]
